FAERS Safety Report 21122717 (Version 2)
Quarter: 2023Q1

REPORT INFORMATION
  Report Type: Spontaneous
  Country: FR (occurrence: FR)
  Receive Date: 20220723
  Receipt Date: 20230216
  Transmission Date: 20230418
  Serious: Yes (Life-Threatening)
  Sender: FDA-Public Use
  Company Number: None

PATIENT
  Age: 53 Year
  Sex: Female
  Weight: 85 kg

DRUGS (7)
  1. QUETIAPINE [Suspect]
     Active Substance: QUETIAPINE
     Indication: Depression
     Dates: start: 2013, end: 20220412
  2. CYAMEMAZINE [Suspect]
     Active Substance: CYAMEMAZINE
     Indication: Depression
     Dosage: STRENGTH 25 MG, SCORED FILM-COATED TABLET
     Dates: start: 2013, end: 20220412
  3. PAROXETINE HYDROCHLORIDE [Suspect]
     Active Substance: PAROXETINE HYDROCHLORIDE
     Indication: Depression
     Dosage: STRENGTH  20 MG, SCORED FILM-COATED TABLET
     Dates: start: 2017, end: 20220412
  4. LORAZEPAM [Suspect]
     Active Substance: LORAZEPAM
     Indication: Anxiety
     Dosage: STRENGTH 1 MG, SCORED TABLET
     Dates: start: 2017, end: 20220412
  5. ANAFRANIL [Suspect]
     Active Substance: CLOMIPRAMINE HYDROCHLORIDE
     Indication: Depression
     Dosage: STRENGTH 25 MG, COATED TABLET
     Dates: start: 2013, end: 20220412
  6. ACETAMINOPHEN [Concomitant]
     Active Substance: ACETAMINOPHEN
  7. TAHOR [Concomitant]
     Active Substance: ATORVASTATIN CALCIUM
     Dosage: STRENGTH 20 MG

REACTIONS (5)
  - Acute respiratory distress syndrome [Recovered/Resolved]
  - Electrocardiogram QT prolonged [Recovered/Resolved]
  - Coma [Recovered/Resolved with Sequelae]
  - Hypotension [Recovered/Resolved]
  - Poisoning deliberate [Unknown]

NARRATIVE: CASE EVENT DATE: 20220412
